FAERS Safety Report 23396871 (Version 1)
Quarter: 2024Q1

REPORT INFORMATION
  Report Type: Spontaneous
  Country: GB (occurrence: GB)
  Receive Date: 20240112
  Receipt Date: 20240112
  Transmission Date: 20240410
  Serious: Yes (Other)
  Sender: FDA-Public Use
  Company Number: None

PATIENT
  Age: 44 Year
  Sex: Female
  Weight: 136 kg

DRUGS (8)
  1. DOXYCYCLINE [Suspect]
     Active Substance: DOXYCYCLINE
     Indication: Product used for unknown indication
     Dosage: DOXYCYCLINE 06/11/2023: TWO NOW THEN ONE DAILY, 5 DAYS
     Route: 048
     Dates: start: 20231106
  2. DOXYCYCLINE [Suspect]
     Active Substance: DOXYCYCLINE
     Dosage: 100 MILLIGRAM, UNK
     Route: 048
     Dates: start: 20231117
  3. COCODAMOL [Concomitant]
     Active Substance: ACETAMINOPHEN\CODEINE PHOSPHATE
     Dosage: TAKE 1 OR 2 MAX 4 TIMES/DAYS
     Route: 065
     Dates: start: 20230901, end: 20230929
  4. BECLOMETHASONE\FORMOTEROL [Concomitant]
     Active Substance: BECLOMETHASONE\FORMOTEROL
     Dosage: 1-2 PUFFS TWICE A DAY
     Route: 055
     Dates: start: 20230120
  5. NAPROXEN [Concomitant]
     Active Substance: NAPROXEN
     Dosage: 1 DOSAGE FORM, BID
     Route: 065
     Dates: start: 20230904, end: 20231002
  6. PREDNISOLONE [Concomitant]
     Active Substance: PREDNISOLONE
     Dosage: 8 DOSAGE FORM, QD
     Route: 048
     Dates: start: 20231106, end: 20231111
  7. ALBUTEROL [Concomitant]
     Active Substance: ALBUTEROL
     Dosage: INHALE 2 DOSES AS NEEDED
     Route: 055
     Dates: start: 20220428
  8. SERTRALINE [Concomitant]
     Active Substance: SERTRALINE HYDROCHLORIDE
     Dosage: 1 DOSAGE FORM, QD
     Route: 048
     Dates: start: 20230630

REACTIONS (1)
  - Swelling face [Recovering/Resolving]

NARRATIVE: CASE EVENT DATE: 20231117
